FAERS Safety Report 10060750 (Version 4)
Quarter: 2014Q4

REPORT INFORMATION
  Report Type: Spontaneous
  Country: NZ (occurrence: NZ)
  Receive Date: 20140404
  Receipt Date: 20141110
  Transmission Date: 20150528
  Serious: Yes (Hospitalization, Other)
  Sender: FDA-Public Use
  Company Number: NZ-ABBVIE-14P-118-1210928-00

PATIENT
  Age: 34 Year
  Sex: Male
  Weight: 62 kg

DRUGS (2)
  1. HUMIRA [Suspect]
     Active Substance: ADALIMUMAB
     Indication: CROHN^S DISEASE
     Route: 058
     Dates: start: 20100514, end: 20140221
  2. METHOTREXATE [Suspect]
     Active Substance: METHOTREXATE
     Indication: CROHN^S DISEASE
     Route: 048
     Dates: start: 201203, end: 201402

REACTIONS (6)
  - Bone marrow failure [Recovering/Resolving]
  - Neutrophil count decreased [Unknown]
  - Pancytopenia [Recovered/Resolved]
  - Crohn^s disease [Unknown]
  - Drug ineffective [Recovering/Resolving]
  - Anal fistula [Recovering/Resolving]

NARRATIVE: CASE EVENT DATE: 201402
